FAERS Safety Report 9552077 (Version 1)
Quarter: 2013Q3

REPORT INFORMATION
  Report Type: Spontaneous
  Country: US (occurrence: None)
  Receive Date: 20130724
  Receipt Date: 20130724
  Transmission Date: 20140515
  Serious: Yes (Other)
  Sender: FDA-Public Use
  Company Number: PHEH2013US000554

PATIENT
  Age: 48 Year
  Sex: Female

DRUGS (1)
  1. GLEEVEC [Suspect]
     Indication: GASTRIC CANCER
     Route: 048
     Dates: start: 20120724

REACTIONS (3)
  - Pneumonia [None]
  - Nasopharyngitis [None]
  - Oxygen saturation decreased [None]
